FAERS Safety Report 7987884-5 (Version None)
Quarter: 2011Q4

REPORT INFORMATION
  Report Type: 
  Country: None (occurrence: None)
  Receive Date: 20111216
  Receipt Date: 20101118
  Transmission Date: 20120403
  Serious: No
  Sender: FDA-Public Use
  Company Number: US-BRISTOL-MYERS SQUIBB COMPANY-15382708

PATIENT
  Age: 52 Year
  Sex: Male

DRUGS (4)
  1. ABILIFY [Suspect]
     Indication: BIPOLAR DISORDER
     Dosage: ATLEAST 6 MONTHS
     Route: 048
  2. COGENTIN [Suspect]
  3. PROLIXIN [Concomitant]
  4. PAXIL [Concomitant]

REACTIONS (4)
  - DRUG LEVEL INCREASED [None]
  - PAIN [None]
  - ABDOMINAL DISCOMFORT [None]
  - CONSTIPATION [None]
